FAERS Safety Report 4297044-X (Version None)
Quarter: 2004Q1

REPORT INFORMATION
  Report Type: 
  Country: None (occurrence: None)
  Receive Date: 20040126
  Receipt Date: 20030915
  Transmission Date: 20041129
  Serious: No
  Sender: FDA-Public Use
  Company Number: USA030947254

PATIENT
  Age: 16 Year
  Sex: Female

DRUGS (2)
  1. STRATTERA [Suspect]
     Indication: ATTENTION DEFICIT/HYPERACTIVITY DISORDER
     Dates: start: 20030801
  2. ORAL CONTRACEPTIVE NOS [Concomitant]

REACTIONS (2)
  - DEPRESSION [None]
  - MORBID THOUGHTS [None]
